FAERS Safety Report 4473955-7 (Version None)
Quarter: 2004Q4

REPORT INFORMATION
  Report Type: 
  Country: None (occurrence: None)
  Receive Date: 20041014
  Receipt Date: 20041004
  Transmission Date: 20050328
  Serious: Yes (Hospitalization)
  Sender: FDA-Public Use
  Company Number: GB-JNJFOC-20041001142

PATIENT
  Sex: Female

DRUGS (6)
  1. REMICADE [Suspect]
     Indication: RHEUMATOID ARTHRITIS
     Route: 042
  2. PREDNISOLONE [Concomitant]
  3. FOSAMAX [Concomitant]
  4. CODYRAMOL [Concomitant]
  5. CODYRAMOL [Concomitant]
  6. PARACETAMOL [Concomitant]

REACTIONS (1)
  - PUBIC RAMI FRACTURE [None]
